FAERS Safety Report 11083584 (Version 2)
Quarter: 2015Q3

REPORT INFORMATION
  Report Type: Spontaneous
  Country: PT (occurrence: PT)
  Receive Date: 20150501
  Receipt Date: 20150818
  Transmission Date: 20151125
  Serious: Yes (Hospitalization)
  Sender: FDA-Public Use
  Company Number: PT-BIOGENIDEC-2015BI055580

PATIENT
  Sex: Female

DRUGS (7)
  1. FOSAMAX [Concomitant]
     Active Substance: ALENDRONATE SODIUM
  2. PARACETAMOL [Concomitant]
     Active Substance: ACETAMINOPHEN
  3. FOLICIL [Concomitant]
     Active Substance: FOLIC ACID
  4. LETTER [Concomitant]
  5. AVONEX [Suspect]
     Active Substance: INTERFERON BETA-1A
     Indication: PRODUCT USED FOR UNKNOWN INDICATION
     Route: 030
     Dates: start: 2010
  6. TRENTAL [Concomitant]
     Active Substance: PENTOXIFYLLINE
  7. XANAX [Concomitant]
     Active Substance: ALPRAZOLAM

REACTIONS (3)
  - Inappropriate schedule of drug administration [Unknown]
  - Vagus nerve disorder [Unknown]
  - Fibroma [Unknown]

NARRATIVE: CASE EVENT DATE: 20101213
